FAERS Safety Report 13031805 (Version 1)
Quarter: 2016Q4

REPORT INFORMATION
  Report Type: Spontaneous
  Country: FR (occurrence: FR)
  Receive Date: 20161215
  Receipt Date: 20161215
  Transmission Date: 20170207
  Serious: Yes (Other)
  Sender: FDA-Public Use
  Company Number: FR-PFIZER INC-1148700

PATIENT
  Age: 69 Year
  Sex: Male

DRUGS (7)
  1. BRICANYL [Concomitant]
     Active Substance: TERBUTALINE SULFATE
     Dosage: 6 AEROSOLS/DAY
  2. SOLU-MEDROL [Concomitant]
     Active Substance: METHYLPREDNISOLONE SODIUM SUCCINATE
     Dosage: UNK
  3. ATRACURIUM BESILATE [Suspect]
     Active Substance: ATRACURIUM BESYLATE
     Dosage: 1 DF, UNK
     Route: 042
     Dates: start: 20100604, end: 20100604
  4. DEBRIDAT [Suspect]
     Active Substance: TRIMEBUTINE MALEATE
     Dosage: UNK
  5. ATROVENT [Concomitant]
     Active Substance: IPRATROPIUM BROMIDE
     Dosage: 2 AEROSOLS, FREQUENCY NOT REPORTED
  6. DUPHALAC [Concomitant]
     Active Substance: LACTULOSE
  7. MOTILIUM [Concomitant]
     Active Substance: DOMPERIDONE
     Dosage: UNK

REACTIONS (4)
  - Drug dispensing error [Recovered/Resolved]
  - Bronchospasm [Recovered/Resolved]
  - Wrong drug administered [Recovered/Resolved]
  - Neuromuscular blocking therapy [Recovered/Resolved]

NARRATIVE: CASE EVENT DATE: 20100604
